FAERS Safety Report 16895283 (Version 1)
Quarter: 2019Q4

REPORT INFORMATION
  Report Type: Spontaneous
  Country: US (occurrence: US)
  Receive Date: 20191007
  Receipt Date: 20191007
  Transmission Date: 20200122
  Serious: Yes (Death, Hospitalization)
  Sender: FDA-Public Use
  Company Number: None

PATIENT
  Age: 64 Year
  Sex: Male
  Weight: 79 kg

DRUGS (3)
  1. APIXABAN [Suspect]
     Active Substance: APIXABAN
     Indication: PULMONARY EMBOLISM
     Route: 048
  2. PREDNISON [Concomitant]
     Active Substance: PREDNISONE
     Dates: start: 20191003, end: 20191003
  3. IBRUTINIB [Concomitant]
     Active Substance: IBRUTINIB
     Dates: start: 20191003, end: 20191006

REACTIONS (2)
  - Pulmonary alveolar haemorrhage [None]
  - Sepsis [None]

NARRATIVE: CASE EVENT DATE: 20191006
